FAERS Safety Report 16157222 (Version 1)
Quarter: 2019Q2

REPORT INFORMATION
  Report Type: Spontaneous
  Country: US (occurrence: US)
  Receive Date: 20190404
  Receipt Date: 20190404
  Transmission Date: 20190711
  Serious: Yes (Other)
  Sender: FDA-Public Use
  Company Number: US-BAYER-2019-067124

PATIENT
  Age: 41 Year
  Sex: Female

DRUGS (1)
  1. KYLEENA [Suspect]
     Active Substance: LEVONORGESTREL
     Indication: UTERINE DISORDER
     Dosage: 17.5 MCG/24HR, CONT
     Route: 015
     Dates: start: 20180627

REACTIONS (3)
  - Off label use [None]
  - Product use in unapproved indication [None]
  - Genital haemorrhage [None]

NARRATIVE: CASE EVENT DATE: 201806
